FAERS Safety Report 5120572-1 (Version None)
Quarter: 2006Q4

REPORT INFORMATION
  Report Type: 
  Country: None (occurrence: None)
  Receive Date: 20061002
  Receipt Date: 20060920
  Transmission Date: 20070319
  Serious: Yes (Hospitalization)
  Sender: FDA-Public Use
  Company Number: 028-C5013-06090807

PATIENT
  Age: 67 Year
  Sex: Female

DRUGS (16)
  1. CC-5013 (LENALIDOMIDE) (CAPSULES) [Suspect]
     Indication: MULTIPLE MYELOMA
     Dosage: 25 MG, DAILY, ORAL
     Route: 048
     Dates: start: 20060908, end: 20060917
  2. DEXAMETHASONE TAB [Suspect]
     Indication: MULTIPLE MYELOMA
     Dosage: 40 MG
     Dates: start: 20060908, end: 20060917
  3. ASPIRIN [Concomitant]
  4. VITAMIN D [Concomitant]
  5. ALTACE [Concomitant]
  6. COLACE (DOCUSATE SODIUM) [Concomitant]
  7. SENOSIDES (SENNOSIDE B) [Concomitant]
  8. DILANTIN [Concomitant]
  9. ACETAMINOPHEN [Concomitant]
  10. MORPHINE SULFATE [Concomitant]
  11. NEXIUM [Concomitant]
  12. LASIX [Concomitant]
  13. MICRO K (POTASSIUM CHLORIDE) [Concomitant]
  14. CONTIN (MORPHINE SULFATE) [Concomitant]
  15. ELAVIL [Concomitant]
  16. SYNTHROID [Concomitant]

REACTIONS (5)
  - BRONCHITIS ACUTE [None]
  - HAEMATOCRIT DECREASED [None]
  - HAEMOGLOBIN DECREASED [None]
  - MALAISE [None]
  - RED BLOOD CELL COUNT DECREASED [None]
